FAERS Safety Report 4441920-1 (Version None)
Quarter: 2004Q3

REPORT INFORMATION
  Report Type: 
  Country: None (occurrence: None)
  Receive Date: 20040901
  Receipt Date: 20040819
  Transmission Date: 20050211
  Serious: Yes (Life-Threatening)
  Sender: FDA-Public Use
  Company Number: 2004229726FR

PATIENT
  Age: 58 Year
  Sex: Female
  Weight: 148 kg

DRUGS (9)
  1. ALDACTONE [Suspect]
     Dosage: 75 MG, DAILY, ORAL
     Route: 048
  2. ALDALIX (FUROSEMIDE, SPIRONOLACTONE) TABLET [Suspect]
     Dosage: 250 MG, DAILY, ORAL
     Route: 048
  3. CARDIZEM [Suspect]
     Indication: PULMONARY HYPERTENSION
     Dosage: 300 MG, DAILY, ORAL
     Route: 048
  4. TRACLEER [Suspect]
     Indication: PULMONARY HYPERTENSION
     Dosage: SEE IMAGE
     Route: 048
     Dates: start: 20030901, end: 20031015
  5. TRACLEER [Suspect]
     Indication: PULMONARY HYPERTENSION
     Dosage: SEE IMAGE
     Route: 048
     Dates: start: 20031016
  6. TRACLEER [Suspect]
     Indication: PULMONARY HYPERTENSION
     Dosage: SEE IMAGE
     Route: 048
     Dates: start: 20040106
  7. TRACLEER [Suspect]
     Indication: PULMONARY HYPERTENSION
     Dosage: SEE IMAGE
     Route: 048
     Dates: start: 20040110
  8. ZOLPIDEM TARTRATE [Suspect]
     Dosage: 10 MG, DAILY, ORAL
     Route: 048
  9. PREVISCAN (FLUINDIONE) TABLET [Suspect]
     Dosage: 20 MG, DAILY, ORAL
     Route: 048

REACTIONS (10)
  - CARDIAC FAILURE [None]
  - CARDIAC FAILURE CONGESTIVE [None]
  - DRY MOUTH [None]
  - DYSPNOEA [None]
  - HYPOXIA [None]
  - NIGHTMARE [None]
  - OEDEMA PERIPHERAL [None]
  - PULMONARY OEDEMA [None]
  - RIGHT VENTRICULAR FAILURE [None]
  - TREATMENT NONCOMPLIANCE [None]
